FAERS Safety Report 9296242 (Version 2)
Quarter: 2013Q2

REPORT INFORMATION
  Report Type: Report from Study
  Country: KR (occurrence: KR)
  Receive Date: 20130517
  Receipt Date: 20130530
  Transmission Date: 20140414
  Serious: Yes (Hospitalization)
  Sender: FDA-Public Use
  Company Number: KR-GLAXOSMITHKLINE-B0892360A

PATIENT
  Age: 51 Year
  Sex: Female

DRUGS (13)
  1. LAPATINIB [Suspect]
     Indication: BREAST CANCER
     Dosage: 1250MG PER DAY
     Route: 048
     Dates: start: 20120731, end: 20130114
  2. STILLEN [Concomitant]
     Indication: PROPHYLAXIS
     Dosage: 60MG THREE TIMES PER DAY
     Route: 048
     Dates: start: 20121027, end: 20130313
  3. MACPERAN [Concomitant]
     Indication: PROPHYLAXIS
     Dosage: 50MG TWICE PER DAY
     Route: 048
     Dates: start: 20130118, end: 20130314
  4. CURAN [Concomitant]
     Indication: PROPHYLAXIS
     Dosage: 50MG TWICE PER DAY
     Route: 042
     Dates: start: 20130117, end: 20130213
  5. GASTER [Concomitant]
     Indication: PROPHYLAXIS
     Dosage: 20MG PER DAY
     Route: 042
     Dates: start: 20130120, end: 20130130
  6. MORPHINE [Concomitant]
     Indication: PAIN
     Dosage: 10MG PER DAY
     Route: 042
     Dates: start: 20120801, end: 20130213
  7. VITIS VINIFERA [Concomitant]
     Indication: OEDEMA
     Dosage: 150MG TWICE PER DAY
     Route: 048
     Dates: start: 20120801, end: 20130114
  8. DOXIUM [Concomitant]
     Indication: OEDEMA
     Dosage: 250MG THREE TIMES PER DAY
     Route: 048
     Dates: start: 20120801, end: 20130114
  9. APLACE [Concomitant]
     Indication: PROPHYLAXIS
     Dosage: 100MG THREE TIMES PER DAY
     Route: 048
     Dates: start: 20120801, end: 20130114
  10. CYMBALTA [Concomitant]
     Indication: PAIN
     Dosage: 30MG PER DAY
     Route: 048
     Dates: start: 20120801, end: 20130114
  11. TRAZODONE HCL [Concomitant]
     Indication: PROPHYLAXIS
     Dosage: 25MG PER DAY
     Route: 048
     Dates: start: 20120801, end: 20130114
  12. ALPRAZOLAM [Concomitant]
     Indication: PROPHYLAXIS
     Dosage: .25MG THREE TIMES PER DAY
     Route: 048
     Dates: start: 20120801, end: 20130114
  13. STILLEN [Concomitant]
     Indication: PROPHYLAXIS
     Dosage: 60MG THREE TIMES PER DAY
     Route: 048
     Dates: start: 20121027, end: 20130313

REACTIONS (1)
  - Disease progression [Not Recovered/Not Resolved]
